FAERS Safety Report 4556461-0 (Version None)
Quarter: 2005Q1

REPORT INFORMATION
  Report Type: 
  Country: None (occurrence: None)
  Receive Date: 20050114
  Receipt Date: 20041101
  Transmission Date: 20050727
  Serious: Yes (Hospitalization)
  Sender: FDA-Public Use
  Company Number: 207147

PATIENT
  Age: 38 Year
  Sex: Male

DRUGS (9)
  1. AVONEX [Suspect]
     Indication: MULTIPLE SCLEROSIS
     Dosage: 30 UG; QW; IM
     Route: 030
     Dates: start: 20030314, end: 20031001
  2. AVONEX [Suspect]
     Indication: MULTIPLE SCLEROSIS
     Dosage: 30 UG; QW; IM
     Route: 030
     Dates: start: 20031001
  3. BACLOFEN [Concomitant]
  4. BEXTRA [Concomitant]
  5. CLARITIN [Concomitant]
  6. COMBIVENT [Concomitant]
  7. PROTONIX [Concomitant]
  8. PROVIGIL [Concomitant]
  9. ZOLOFT [Concomitant]

REACTIONS (3)
  - ASTHMA [None]
  - NASOPHARYNGITIS [None]
  - SINUSITIS [None]
